FAERS Safety Report 21183005 (Version 2)
Quarter: 2022Q4

REPORT INFORMATION
  Report Type: Report from Study
  Country: AR (occurrence: AR)
  Receive Date: 20220808
  Receipt Date: 20221031
  Transmission Date: 20230113
  Serious: Yes (Other)
  Sender: FDA-Public Use
  Company Number: AR-NOVARTISPH-NVSC2020AR270092

PATIENT
  Age: 45 Year
  Sex: Male

DRUGS (6)
  1. COSENTYX [Suspect]
     Active Substance: SECUKINUMAB
     Indication: Psoriatic arthropathy
     Dosage: 300 MG, QMO
     Route: 058
     Dates: start: 20190819, end: 202003
  2. COSENTYX [Suspect]
     Active Substance: SECUKINUMAB
     Indication: Psoriasis
     Dosage: 300 MG, QMO
     Route: 058
     Dates: start: 20190819
  3. COSENTYX [Suspect]
     Active Substance: SECUKINUMAB
     Dosage: UNK
     Route: 065
     Dates: start: 20200818
  4. COSENTYX [Suspect]
     Active Substance: SECUKINUMAB
     Dosage: 300 MG, QMO
     Route: 058
     Dates: start: 20200920
  5. COSENTYX [Suspect]
     Active Substance: SECUKINUMAB
     Dosage: UNK
     Route: 058
     Dates: start: 202010
  6. COSENTYX [Suspect]
     Active Substance: SECUKINUMAB
     Dosage: 300 MG, QMO
     Route: 058

REACTIONS (20)
  - Condition aggravated [Unknown]
  - Skin discolouration [Unknown]
  - Pain [Unknown]
  - Scratch [Unknown]
  - Skin exfoliation [Unknown]
  - Psoriasis [Unknown]
  - Pruritus [Unknown]
  - Pyrexia [Unknown]
  - Dry skin [Unknown]
  - Nasopharyngitis [Unknown]
  - Hypokinesia [Unknown]
  - Feeling hot [Unknown]
  - Psoriasis [Recovered/Resolved]
  - Sensitive skin [Recovered/Resolved]
  - Skin lesion [Recovered/Resolved]
  - Dry skin [Recovered/Resolved]
  - Pruritus [Recovered/Resolved]
  - Skin wound [Recovered/Resolved]
  - Acne [Unknown]
  - Product supply issue [Unknown]

NARRATIVE: CASE EVENT DATE: 20200301
